FAERS Safety Report 11592595 (Version 2)
Quarter: 2015Q4

REPORT INFORMATION
  Report Type: Spontaneous
  Country: DE (occurrence: DE)
  Receive Date: 20151005
  Receipt Date: 20151021
  Transmission Date: 20160304
  Serious: Yes (Other)
  Sender: FDA-Public Use
  Company Number: DE-ACTAVIS-2015-21162

PATIENT
  Age: 36 Year
  Sex: Female

DRUGS (3)
  1. NADROPARIN [Concomitant]
     Active Substance: NADROPARIN
     Indication: SCIATICA
     Dosage: UNK
     Route: 065
  2. DICLOFENAC SODIUM (UNKNOWN) [Suspect]
     Active Substance: DICLOFENAC SODIUM
     Indication: SCIATICA
     Dosage: 300 MG, DAILY
     Route: 065
  3. DICLOFENAC SODIUM (UNKNOWN) [Suspect]
     Active Substance: DICLOFENAC SODIUM
     Dosage: 150 MG, DAILY
     Route: 065

REACTIONS (2)
  - Oligohydramnios [Recovered/Resolved]
  - Maternal exposure during pregnancy [Recovered/Resolved]
